FAERS Safety Report 8588571-5 (Version None)
Quarter: 2012Q3

REPORT INFORMATION
  Report Type: 
  Country: None (occurrence: None)
  Receive Date: 20120803
  Receipt Date: 20120803
  Transmission Date: 20120928
  Serious: Yes (Other)
  Sender: FDA-Public Use
  Company Number: None

PATIENT
  Age: 44 Year
  Sex: Female

DRUGS (2)
  1. AZITHROMYCIN [Suspect]
     Dates: start: 20120731, end: 20120731
  2. CHERATUSSIN AC QUALITEST [Concomitant]

REACTIONS (2)
  - EAR PAIN [None]
  - DEAFNESS UNILATERAL [None]
